FAERS Safety Report 6809642-7 (Version None)
Quarter: 2010Q2

REPORT INFORMATION
  Report Type: 
  Country: None (occurrence: None)
  Receive Date: 20100630
  Receipt Date: 20100618
  Transmission Date: 20101027
  Serious: Yes (Hospitalization)
  Sender: FDA-Public Use
  Company Number: US-PFIZER INC-2010076546

PATIENT
  Age: 36 Year
  Sex: Female

DRUGS (5)
  1. DILANTIN-125 [Suspect]
     Indication: CONVULSION
     Dosage: 375 MG, 1X/DAY
  2. DILANTIN-125 [Suspect]
     Dosage: 400 MG, UNK
  3. DIVALPROEX SODIUM [Suspect]
     Indication: CONVULSION
     Dosage: 500 MG, 7 IN 1 D
     Route: 048
     Dates: end: 20100101
  4. DEPAKOTE [Suspect]
     Indication: CONVULSION
     Dosage: 3500MG DAILY
     Route: 065
  5. LEVETIRACETAM [Concomitant]
     Indication: CONVULSION
     Dosage: 1500MG DAILY

REACTIONS (2)
  - GINGIVAL SWELLING [None]
  - THERAPEUTIC AGENT TOXICITY [None]
